FAERS Safety Report 19990029 (Version 1)
Quarter: 2021Q4

REPORT INFORMATION
  Report Type: Spontaneous
  Country: US (occurrence: US)
  Receive Date: 20211025
  Receipt Date: 20211025
  Transmission Date: 20220303
  Serious: Yes (Death, Other)
  Sender: FDA-Public Use
  Company Number: US-AMGEN-USASP2021161666

PATIENT

DRUGS (6)
  1. PEGFILGRASTIM [Suspect]
     Active Substance: PEGFILGRASTIM
     Indication: Prophylaxis
     Dosage: 6 MILLIGRAM
     Route: 058
  2. DACARBAZINE [Concomitant]
     Active Substance: DACARBAZINE
     Dosage: 850 MILLIGRAM/SQ. METER (3-WEEK CYCLE)
     Route: 042
  3. PALONOSETRON. [Concomitant]
     Active Substance: PALONOSETRON HYDROCHLORIDE
     Indication: Prophylaxis
     Dosage: 0.25 MILLIGRAM
  4. ONDANSETRON [Concomitant]
     Active Substance: ONDANSETRON
     Indication: Prophylaxis
     Dosage: 32 MILLIGRAM
  5. APREPITANT [Concomitant]
     Active Substance: APREPITANT
     Indication: Prophylaxis
     Dosage: 150 MILLIGRAM
  6. DEXAMETHASONE [Concomitant]
     Active Substance: DEXAMETHASONE
     Dosage: 20 MILLIGRAM

REACTIONS (2)
  - Death [Fatal]
  - Disease progression [Unknown]
